FAERS Safety Report 8100911-X (Version None)
Quarter: 2012Q1

REPORT INFORMATION
  Report Type: 
  Country: None (occurrence: None)
  Receive Date: 20120129
  Receipt Date: 20110908
  Transmission Date: 20120608
  Serious: No
  Sender: FDA-Public Use
  Company Number: US-ABBOTT-11P-163-0853369-00

PATIENT
  Sex: Male
  Weight: 95.34 kg

DRUGS (5)
  1. PLAQUENIL [Concomitant]
     Indication: CROHN'S DISEASE
  2. HUMIRA [Suspect]
     Dosage: SINGLE DOSE THEN STOPPED
     Dates: start: 20110801, end: 20110801
  3. HUMIRA [Suspect]
     Indication: CROHN'S DISEASE
     Dosage: SINGLE DOSE
     Dates: start: 20110701, end: 20110701
  4. HUMIRA [Suspect]
     Dosage: SINGLE DOSE
     Dates: start: 20110801, end: 20110801
  5. IMURAN [Concomitant]
     Indication: CROHN'S DISEASE
     Dosage: 100 MG, DAILY

REACTIONS (5)
  - ARTHRALGIA [None]
  - ARTHRITIS [None]
  - PAIN [None]
  - SYSTEMIC LUPUS ERYTHEMATOSUS [None]
  - JOINT SWELLING [None]
